FAERS Safety Report 7798408-X (Version None)
Quarter: 2011Q4

REPORT INFORMATION
  Report Type: 
  Country: None (occurrence: None)
  Receive Date: 20111005
  Receipt Date: 20110927
  Transmission Date: 20120403
  Serious: Yes (Hospitalization)
  Sender: FDA-Public Use
  Company Number: US-MYLANLABS-2011S1020378

PATIENT
  Age: 48 Year
  Sex: Female

DRUGS (13)
  1. COREG [Concomitant]
  2. COLACE [Concomitant]
  3. LAMOTRIGINE [Suspect]
     Indication: MOOD SWINGS
     Route: 048
     Dates: start: 20110826, end: 20110830
  4. SENNA PLUS /00142201/ [Concomitant]
  5. LAMOTRIGINE [Suspect]
     Indication: DEPRESSION
     Route: 048
     Dates: start: 20110826, end: 20110830
  6. SYNTHROID [Concomitant]
  7. LAMOTRIGINE [Suspect]
     Route: 048
     Dates: end: 20110825
  8. LAMOTRIGINE [Suspect]
     Route: 048
     Dates: end: 20110825
  9. COUMADIN [Concomitant]
  10. CELEXA [Concomitant]
  11. LAMOTRIGINE [Suspect]
     Route: 048
  12. LAMOTRIGINE [Suspect]
     Route: 048
  13. RAMIPRIL [Concomitant]

REACTIONS (2)
  - DRUG PRESCRIBING ERROR [None]
  - DRUG RASH WITH EOSINOPHILIA AND SYSTEMIC SYMPTOMS [None]
